FAERS Safety Report 9965566 (Version 1)
Quarter: 2014Q1

REPORT INFORMATION
  Report Type: Spontaneous
  Country: US (occurrence: US)
  Receive Date: 20140305
  Receipt Date: 20140305
  Transmission Date: 20141002
  Serious: No
  Sender: FDA-Public Use
  Company Number: US-ABBVIE-13P-163-1126989-00

PATIENT
  Age: 52 Year
  Sex: Female

DRUGS (3)
  1. HUMIRA [Suspect]
     Indication: CROHN^S DISEASE
     Dates: start: 20130620, end: 20130620
  2. HUMIRA [Suspect]
     Dates: start: 20130704, end: 20130704
  3. HUMIRA [Suspect]
     Dates: start: 20130718

REACTIONS (2)
  - Medication error [Recovered/Resolved]
  - Incorrect dose administered [Recovered/Resolved]
